FAERS Safety Report 19742641 (Version 1)
Quarter: 2021Q3

REPORT INFORMATION
  Report Type: Spontaneous
  Country: DE (occurrence: DE)
  Receive Date: 20210824
  Receipt Date: 20210824
  Transmission Date: 20211014
  Serious: Yes (Other)
  Sender: FDA-Public Use
  Company Number: DE-BAYER-2021-198665

PATIENT
  Age: 37 Year
  Sex: Female
  Weight: 80 kg

DRUGS (1)
  1. KYLEENA [Suspect]
     Active Substance: LEVONORGESTREL
     Dosage: 17.5 ?G, CONT
     Route: 015
     Dates: start: 202010

REACTIONS (3)
  - Weight increased [None]
  - Fluid retention [None]
  - Arthralgia [None]
